FAERS Safety Report 4469385-4 (Version None)
Quarter: 2004Q4

REPORT INFORMATION
  Report Type: 
  Country: None (occurrence: None)
  Receive Date: 20041008
  Receipt Date: 20040503
  Transmission Date: 20050328
  Serious: No
  Sender: FDA-Public Use
  Company Number: US-BRISTOL-MYERS SQUIBB COMPANY-12577102

PATIENT
  Age: 78 Year
  Sex: Female
  Weight: 53 kg

DRUGS (17)
  1. AVAPRO [Suspect]
     Indication: HYPERTENSION
     Route: 048
     Dates: start: 20040424
  2. CARDIZEM [Concomitant]
  3. VITAMIN B COMPLEX CAP [Concomitant]
  4. VITAMIN C [Concomitant]
  5. VITAMIN E [Concomitant]
  6. CALCIUM [Concomitant]
  7. MAGNESIUM [Concomitant]
  8. CHROMIUM [Concomitant]
  9. ZINC [Concomitant]
  10. COENZYME Q10 [Concomitant]
  11. GARLIC [Concomitant]
  12. GINKGO [Concomitant]
  13. LEUCINE [Concomitant]
  14. GLUCOSAMINE [Concomitant]
  15. FISH OIL [Concomitant]
  16. ACIDOPHILUS [Concomitant]
  17. ASPIRIN [Concomitant]

REACTIONS (5)
  - BLOOD PRESSURE INADEQUATELY CONTROLLED [None]
  - DYSGEUSIA [None]
  - EYE IRRITATION [None]
  - EYE PRURITUS [None]
  - EYELID DISORDER [None]
